FAERS Safety Report 25515410 (Version 1)
Quarter: 2025Q3

REPORT INFORMATION
  Report Type: Spontaneous
  Country: EU (occurrence: EU)
  Receive Date: 20250704
  Receipt Date: 20250704
  Transmission Date: 20251021
  Serious: Yes (Other)
  Sender: CHEPLAPHARM
  Company Number: EU-CHEPLA-2025008061

PATIENT
  Age: 38 Year
  Sex: Male

DRUGS (3)
  1. OLANZAPINE [Suspect]
     Active Substance: OLANZAPINE
     Indication: Psychotic disorder
     Dates: start: 20050820, end: 20241217
  2. ABILIFY [Suspect]
     Active Substance: ARIPIPRAZOLE
     Indication: Psychotic disorder
     Dates: start: 20050820, end: 20241217
  3. TRIMETHYLGLYCINE [Concomitant]

REACTIONS (4)
  - Myocardial infarction [Unknown]
  - Angina pectoris [Unknown]
  - Adverse drug reaction [Unknown]
  - Osteoporosis [Unknown]

NARRATIVE: CASE EVENT DATE: 20060415
